FAERS Safety Report 5390228-9 (Version None)
Quarter: 2007Q3

REPORT INFORMATION
  Report Type: 
  Country: None (occurrence: None)
  Receive Date: 20070718
  Receipt Date: 20070706
  Transmission Date: 20080115
  Serious: Yes (Death)
  Sender: FDA-Public Use
  Company Number: JP-ROCHE-506522

PATIENT
  Age: 70 Year
  Sex: Female

DRUGS (1)
  1. PEGASYS [Suspect]
     Route: 058
     Dates: start: 20070604, end: 20070618

REACTIONS (1)
  - DISSEMINATED INTRAVASCULAR COAGULATION [None]
